FAERS Safety Report 10975431 (Version 4)
Quarter: 2016Q2

REPORT INFORMATION
  Report Type: Spontaneous
  Country: US (occurrence: US)
  Receive Date: 20150401
  Receipt Date: 20160624
  Transmission Date: 20160815
  Serious: Yes (Hospitalization, Other)
  Sender: FDA-Public Use
  Company Number: US-PFIZER INC-2015109197

PATIENT
  Age: 60 Year
  Sex: Female
  Weight: 75 kg

DRUGS (15)
  1. LISINOPRIL. [Concomitant]
     Active Substance: LISINOPRIL
     Indication: BLOOD PRESSURE ABNORMAL
     Dosage: 10 MG, UNK
     Dates: start: 201405
  2. OMEPRAZOLE. [Concomitant]
     Active Substance: OMEPRAZOLE
     Dosage: 20 MG, 2X/DAY
  3. MVI [Concomitant]
     Active Substance: VITAMINS
     Dosage: UNK
  4. ASA [Concomitant]
     Active Substance: ASPIRIN
     Dosage: 81 ?G, UNK
  5. SIMVASTATIN. [Concomitant]
     Active Substance: SIMVASTATIN
     Dosage: 5 UNK, UNK
  6. SIROLIMUS. [Suspect]
     Active Substance: SIROLIMUS
     Dosage: 0.5 MG, DAILY
  7. SIROLIMUS. [Suspect]
     Active Substance: SIROLIMUS
     Dosage: 1 MG, UNK
  8. SIMVASTATIN. [Concomitant]
     Active Substance: SIMVASTATIN
     Indication: BLOOD CHOLESTEROL
     Dosage: 10 MG, UNK
  9. SIMVASTATIN. [Concomitant]
     Active Substance: SIMVASTATIN
     Dosage: 10 UNK, UNK
     Dates: start: 20160526
  10. VITAMIN D [Concomitant]
     Active Substance: CHOLECALCIFEROL
     Dosage: 4000 MG, UNK
  11. ESTER C [Concomitant]
     Dosage: 1000 MG, UNK
  12. TIMOPTIC OCUDOSE [Concomitant]
     Dosage: (0.5 % EVERY OTHER DAY EVERY OTHER EYE)
  13. SIROLIMUS. [Suspect]
     Active Substance: SIROLIMUS
     Indication: LYMPHANGIOLEIOMYOMATOSIS
     Dosage: 1 MG, 1X/DAY
     Route: 048
     Dates: start: 201302
  14. OMEPRAZOLE. [Concomitant]
     Active Substance: OMEPRAZOLE
     Dosage: 40 MG, 2X/DAY
  15. VITAMIN E [Concomitant]
     Active Substance: .ALPHA.-TOCOPHEROL
     Dosage: 400 IU, UNK

REACTIONS (14)
  - Gastrooesophageal reflux disease [Recovered/Resolved]
  - Swelling [Recovered/Resolved]
  - Chills [Recovered/Resolved]
  - Malaise [Recovered/Resolved]
  - Blood cholesterol increased [Not Recovered/Not Resolved]
  - Peripheral swelling [Recovered/Resolved]
  - Diarrhoea [Recovered/Resolved]
  - Intraocular pressure increased [Not Recovered/Not Resolved]
  - Headache [Recovered/Resolved]
  - Glaucoma [Unknown]
  - Drug ineffective for unapproved indication [Unknown]
  - Fatigue [Recovered/Resolved]
  - Hypertension [Unknown]
  - Anal incontinence [Recovered/Resolved]

NARRATIVE: CASE EVENT DATE: 201302
